FAERS Safety Report 5502506-0 (Version None)
Quarter: 2007Q4

REPORT INFORMATION
  Report Type: 
  Country: None (occurrence: None)
  Receive Date: 20071030
  Receipt Date: 20071026
  Transmission Date: 20080405
  Serious: Yes (Life-Threatening)
  Sender: FDA-Public Use
  Company Number: US-ROXANE LABORATORIES, INC-2007-DE-06314GD

PATIENT
  Sex: Male

DRUGS (1)
  1. MORPHINE [Suspect]

REACTIONS (3)
  - COMA [None]
  - MEDICATION ERROR [None]
  - RENAL FAILURE [None]
